FAERS Safety Report 8212403-8 (Version None)
Quarter: 2012Q1

REPORT INFORMATION
  Report Type: 
  Country: None (occurrence: None)
  Receive Date: 20120228
  Receipt Date: 20110912
  Transmission Date: 20120608
  Serious: Yes (Hospitalization, Other)
  Sender: FDA-Public Use
  Company Number: US201105003830

PATIENT
  Age: 44 Year
  Sex: Male
  Weight: 74.8 kg

DRUGS (6)
  1. OLANZAPINE [Suspect]
     Indication: SCHIZOAFFECTIVE DISORDER
     Dosage: INTRAMUSCULAR
     Route: 030
     Dates: start: 20110215
  2. OLANZAPINE [Suspect]
     Indication: SCHIZOAFFECTIVE DISORDER
     Dosage: INTRAMUSCULAR
     Route: 030
     Dates: start: 20110511
  3. OLANZAPINE [Suspect]
     Indication: SCHIZOAFFECTIVE DISORDER
     Dosage: INTRAMUSCULAR
     Route: 030
     Dates: start: 20101221
  4. OLANZAPINE [Suspect]
     Indication: SCHIZOAFFECTIVE DISORDER
     Dosage: INTRAMUSCULAR
     Route: 030
     Dates: start: 20110118
  5. OLANZAPINE [Suspect]
     Indication: SCHIZOAFFECTIVE DISORDER
     Dosage: INTRAMUSCULAR
     Route: 030
     Dates: start: 20110315
  6. OLANZAPINE [Suspect]
     Indication: SCHIZOAFFECTIVE DISORDER
     Dosage: INTRAMUSCULAR
     Route: 030
     Dates: start: 20110413

REACTIONS (10)
  - DIZZINESS [None]
  - DYSKINESIA [None]
  - ANXIETY [None]
  - DELIRIUM [None]
  - DYSARTHRIA [None]
  - TACHYCARDIA [None]
  - AGITATION [None]
  - CONFUSIONAL STATE [None]
  - DISORIENTATION [None]
  - SENSORY DISTURBANCE [None]
